FAERS Safety Report 5729381-3 (Version None)
Quarter: 2008Q2

REPORT INFORMATION
  Report Type: 
  Country: None (occurrence: None)
  Receive Date: 20080430
  Receipt Date: 20080212
  Transmission Date: 20081010
  Serious: No
  Sender: FDA-Public Use
  Company Number: 2008PV034254

PATIENT
  Age: 41 Year
  Sex: Male
  Weight: 99.3377 kg

DRUGS (8)
  1. SYMLIN [Suspect]
     Indication: TYPE 1 DIABETES MELLITUS
     Dosage: 60 MCG;TID;SC
     Route: 058
     Dates: start: 20060101, end: 20070901
  2. HUMALOG [Concomitant]
  3. LEVOTHYROXINE SODIUM [Concomitant]
  4. ACCUPRIL [Concomitant]
  5. ACETAZOLAMIDE [Concomitant]
  6. LEXAPRO [Concomitant]
  7. TRAXADONE [Concomitant]
  8. LIPITOR [Concomitant]

REACTIONS (1)
  - OVERGROWTH BACTERIAL [None]
